FAERS Safety Report 22811057 (Version 4)
Quarter: 2023Q4

REPORT INFORMATION
  Report Type: Report from Study
  Country: US (occurrence: US)
  Receive Date: 20230810
  Receipt Date: 20231130
  Transmission Date: 20240110
  Serious: Yes (Hospitalization, Other)
  Sender: FDA-Public Use
  Company Number: US-ABBVIE-5334309

PATIENT
  Sex: Male

DRUGS (5)
  1. VENCLEXTA [Suspect]
     Active Substance: VENETOCLAX
     Indication: Chronic myelomonocytic leukaemia
     Dosage: FORM STRENGTH WAS 100 MILLIGRAM?DOSE TAKE ONE TABLET DAILY ON DAYS 1-14 OUT OF A 28 DAY CYCLE?LAS...
     Route: 048
     Dates: start: 20230606
  2. VENCLEXTA [Suspect]
     Active Substance: VENETOCLAX
     Indication: Chronic myelomonocytic leukaemia
     Route: 048
  3. VENCLEXTA [Suspect]
     Active Substance: VENETOCLAX
     Indication: Chronic myelomonocytic leukaemia
     Route: 048
  4. VENCLEXTA [Suspect]
     Active Substance: VENETOCLAX
     Indication: Chronic myelomonocytic leukaemia
     Route: 048
  5. XOSPATA [Suspect]
     Active Substance: GILTERITINIB
     Indication: Chronic myelomonocytic leukaemia
     Dosage: LAST ADMIN DATE-2023
     Route: 065
     Dates: start: 20230606

REACTIONS (6)
  - Hospitalisation [Unknown]
  - Platelet count decreased [Unknown]
  - Fall [Unknown]
  - Eye infection [Unknown]
  - White blood cell count decreased [Unknown]
  - Head injury [Unknown]

NARRATIVE: CASE EVENT DATE: 20230101
